FAERS Safety Report 12350515 (Version 3)
Quarter: 2016Q2

REPORT INFORMATION
  Report Type: Other
  Country: IT (occurrence: IT)
  Receive Date: 20160510
  Receipt Date: 20160617
  Transmission Date: 20160815
  Serious: Yes (Other)
  Sender: FDA-Public Use
  Company Number: IT-DENTSPLY-2016SCDP000113

PATIENT
  Age: 50 Year
  Sex: Female

DRUGS (1)
  1. CARBOPLYINA 3% [Suspect]
     Active Substance: MEPIVACAINE HYDROCHLORIDE
     Indication: LOCAL ANAESTHESIA
     Dosage: 1.8 ML, UNK
     Route: 004
     Dates: start: 20160419, end: 20160419

REACTIONS (2)
  - Paraesthesia [Unknown]
  - Oral discomfort [Unknown]

NARRATIVE: CASE EVENT DATE: 20160419
